FAERS Safety Report 8066904-6 (Version None)
Quarter: 2012Q1

REPORT INFORMATION
  Report Type: 
  Country: None (occurrence: None)
  Receive Date: 20120124
  Receipt Date: 20120117
  Transmission Date: 20120608
  Serious: Yes (Other)
  Sender: FDA-Public Use
  Company Number: PHHY2011DE63411

PATIENT
  Age: 71 Year
  Sex: Male
  Weight: 84 kg

DRUGS (6)
  1. BISOPROLOL FUMARATE [Interacting]
     Indication: TUBERCULOSIS BLADDER
     Dosage: 3.75 MG, UNK
  2. BISOPROLOL FUMARATE [Interacting]
     Dosage: 3.75 MG, IN THE MORNING AND AN ADDITIONAL 1.875 MG BISOPROLOL IN THE EVENING
  3. BISOPROLOL FUMARATE [Interacting]
     Dosage: 1.875 MG, IN THE EVENING AND 3.75 MG IN THE MORNING
  4. ISONIAZID [Concomitant]
     Indication: TUBERCULOSIS BLADDER
     Dosage: 300 MG, QD
  5. ETHAMBUTOL HYDROCHLORIDE [Concomitant]
     Indication: TUBERCULOSIS BLADDER
     Dosage: 400 MG, TID
  6. RIFAMPICIN [Suspect]
     Indication: TUBERCULOSIS BLADDER

REACTIONS (4)
  - VENTRICULAR EXTRASYSTOLES [None]
  - DRUG INTERACTION [None]
  - BODY TEMPERATURE INCREASED [None]
  - HYPERTENSION [None]
